FAERS Safety Report 15483366 (Version 1)
Quarter: 2018Q4

REPORT INFORMATION
  Report Type: Spontaneous
  Country: US (occurrence: US)
  Receive Date: 20181003
  Receipt Date: 20181003
  Transmission Date: 20190205
  Serious: Yes (Death, Life-Threatening, Hospitalization)
  Sender: FDA-Public Use
  Company Number: None

PATIENT
  Age: 79 Year
  Sex: Male
  Weight: 56.7 kg

DRUGS (2)
  1. WARFARIN [Suspect]
     Active Substance: WARFARIN
     Indication: CARDIAC FAILURE CONGESTIVE
     Dates: start: 20180704, end: 20180725
  2. WARFARIN [Suspect]
     Active Substance: WARFARIN
     Indication: DEEP VEIN THROMBOSIS

REACTIONS (8)
  - Gastrointestinal haemorrhage [None]
  - Renal failure [None]
  - Shock haemorrhagic [None]
  - Abdominal distension [None]
  - Hypotension [None]
  - International normalised ratio abnormal [None]
  - Faeces discoloured [None]
  - Therapy change [None]

NARRATIVE: CASE EVENT DATE: 20180724
